FAERS Safety Report 4653126-1 (Version None)
Quarter: 2005Q2

REPORT INFORMATION
  Report Type: 
  Country: None (occurrence: None)
  Receive Date: 20050502
  Receipt Date: 20050502
  Transmission Date: 20051028
  Serious: Yes (Other)
  Sender: FDA-Public Use
  Company Number: None

PATIENT
  Sex: Male
  Weight: 158.1 kg

DRUGS (3)
  1. TRAVOPROST     0.004% [Suspect]
     Indication: GLAUCOMA
     Dosage: 1 DROP     AT BEDTIME  OPHTHALMIC
     Route: 047
     Dates: start: 20040505, end: 20040623
  2. LORAZEPAM [Concomitant]
  3. PAROXETINE [Concomitant]

REACTIONS (1)
  - DYSURIA [None]
